FAERS Safety Report 4715874-4 (Version None)
Quarter: 2005Q3

REPORT INFORMATION
  Report Type: 
  Country: None (occurrence: None)
  Receive Date: 20050718
  Receipt Date: 20050708
  Transmission Date: 20060218
  Serious: Yes (Hospitalization)
  Sender: FDA-Public Use
  Company Number: ES-ROCHE-410071

PATIENT
  Age: 14 Year
  Sex: Female
  Weight: 45 kg

DRUGS (3)
  1. ROACUTAN [Suspect]
     Indication: SEBACEOUS GLAND DISORDER
     Route: 048
     Dates: start: 20010319, end: 20010621
  2. SOLUCEL [Concomitant]
     Indication: SEBACEOUS GLAND DISORDER
     Route: 061
     Dates: start: 20000615, end: 20010115
  3. CLINWAS [Concomitant]
     Indication: SEBACEOUS GLAND DISORDER
     Route: 061
     Dates: start: 20000615

REACTIONS (3)
  - ARTHRITIS [None]
  - MYALGIA [None]
  - PULMONARY INFARCTION [None]
